FAERS Safety Report 4893213-6 (Version None)
Quarter: 2006Q1

REPORT INFORMATION
  Report Type: 
  Country: None (occurrence: None)
  Receive Date: 20060127
  Receipt Date: 20050912
  Transmission Date: 20060701
  Serious: Yes (Hospitalization)
  Sender: FDA-Public Use
  Company Number: US-BOEHRINGER INGELHEIM PHARMACEUTICALS, INC.-2005-BP-16180BP

PATIENT
  Sex: Female

DRUGS (9)
  1. SPIRIVA [Suspect]
     Indication: CHRONIC OBSTRUCTIVE PULMONARY DISEASE
     Route: 055
     Dates: start: 20050329
  2. LIPITOR [Concomitant]
     Indication: BLOOD CHOLESTEROL INCREASED
  3. FOSAMAX [Concomitant]
     Indication: OSTEOPOROSIS PROPHYLAXIS
  4. TOPROL [Concomitant]
     Indication: HYPERTENSION
  5. PLAVIX [Concomitant]
     Indication: THROMBOSIS PROPHYLAXIS
  6. POTASSIUM [Concomitant]
     Indication: MINERAL SUPPLEMENTATION
  7. ASPIRIN [Concomitant]
     Indication: THROMBOSIS PROPHYLAXIS
  8. LASIX [Concomitant]
     Indication: HYPERTENSION
  9. NORVASC [Concomitant]
     Indication: HYPERTENSION

REACTIONS (2)
  - PHARMACEUTICAL PRODUCT COMPLAINT [None]
  - SMALL INTESTINAL OBSTRUCTION [None]
